FAERS Safety Report 4734851-0 (Version None)
Quarter: 2005Q3

REPORT INFORMATION
  Report Type: 
  Country: None (occurrence: None)
  Receive Date: 20050802
  Receipt Date: 20050719
  Transmission Date: 20060218
  Serious: Yes (Hospitalization)
  Sender: FDA-Public Use
  Company Number: 2005BI010961

PATIENT
  Age: 57 Year
  Sex: Male
  Weight: 72.1219 kg

DRUGS (1)
  1. AVONEX [Suspect]
     Indication: MULTIPLE SCLEROSIS
     Dosage: 30 UG; QW; IM
     Route: 030
     Dates: start: 20050520

REACTIONS (4)
  - CONDITION AGGRAVATED [None]
  - HEMIPARESIS [None]
  - MULTIPLE SCLEROSIS [None]
  - URINARY RETENTION [None]
